FAERS Safety Report 8399431-7 (Version None)
Quarter: 2012Q2

REPORT INFORMATION
  Report Type: 
  Country: None (occurrence: None)
  Receive Date: 20120323
  Receipt Date: 20110124
  Transmission Date: 20120825
  Serious: Yes (Hospitalization)
  Sender: FDA-Public Use
  Company Number: 163-21880-11012594

PATIENT
  Age: 70 Year
  Sex: Male

DRUGS (7)
  1. ACETAMINOPHEN [Concomitant]
  2. COUMADIN [Concomitant]
  3. OMEPRAZOLE [Concomitant]
  4. IBUPROFEN [Concomitant]
  5. REVLIMID [Suspect]
     Indication: MULTIPLE MYELOMA
     Dosage: 15 MG, DAILY FOR 21 DAYS EVERY 28, PO
     Route: 048
     Dates: start: 20101101
  6. DEXAMETHASONE [Concomitant]
  7. RANITIDINE HYDROCHLORIDE [Concomitant]

REACTIONS (2)
  - PULMONARY EMBOLISM [None]
  - INTERNATIONAL NORMALISED RATIO INCREASED [None]
